FAERS Safety Report 7139126-0 (Version None)
Quarter: 2010Q4

REPORT INFORMATION
  Report Type: 
  Country: None (occurrence: None)
  Receive Date: 20101206
  Receipt Date: 20101125
  Transmission Date: 20110411
  Serious: Yes (Other)
  Sender: FDA-Public Use
  Company Number: US-JNJCH-2010027450

PATIENT
  Age: 58 Year
  Sex: Male
  Weight: 104.3 kg

DRUGS (2)
  1. PRECISE EXTRA STRENGTH PAIN RELIEVING CREAM [Suspect]
     Indication: NECK PAIN
     Dosage: TEXT:ONCE
     Route: 061
  2. ENALAPRIL MALEATE AND HYDROCHLOROTHIAZIDE [Concomitant]
     Indication: HYPERTENSION
     Dosage: TEXT:1X DAILY
     Route: 065

REACTIONS (2)
  - BURNS THIRD DEGREE [None]
  - PAIN [None]
